FAERS Safety Report 17508872 (Version 1)
Quarter: 2020Q1

REPORT INFORMATION
  Report Type: Spontaneous
  Country: FR (occurrence: FR)
  Receive Date: 20200306
  Receipt Date: 20200306
  Transmission Date: 20200409
  Serious: Yes (Other)
  Sender: FDA-Public Use
  Company Number: FR-PFIZER INC-2020095117

PATIENT
  Age: 81 Year
  Sex: Male
  Weight: 83 kg

DRUGS (5)
  1. PRADAXA [Concomitant]
     Active Substance: DABIGATRAN ETEXILATE MESYLATE
     Dosage: 110 UNK, 2X/DAY (MORNING AND EVENING)
  2. PREVISCAN [FLUINDIONE] [Concomitant]
     Active Substance: FLUINDIONE
     Dosage: UNK
  3. DIAMICRON [Concomitant]
     Active Substance: GLICLAZIDE
     Dosage: UNK
  4. JANUVIA [Concomitant]
     Active Substance: SITAGLIPTIN PHOSPHATE
     Dosage: 100, 1X/DAY (MORNING)
  5. VYNDAQEL [Suspect]
     Active Substance: TAFAMIDIS MEGLUMINE
     Indication: CARDIAC AMYLOIDOSIS
     Dosage: 80 MG, DAILY

REACTIONS (6)
  - Ventricular hypertrophy [Unknown]
  - Off label use [Unknown]
  - Cardiac failure [Unknown]
  - Cardiac amyloidosis [Unknown]
  - Disease progression [Unknown]
  - Product use in unapproved indication [Unknown]
